FAERS Safety Report 6702064-9 (Version None)
Quarter: 2010Q2

REPORT INFORMATION
  Report Type: 
  Country: None (occurrence: None)
  Receive Date: 20100427
  Receipt Date: 20100416
  Transmission Date: 20101027
  Serious: Yes (Other)
  Sender: FDA-Public Use
  Company Number: 010387

PATIENT
  Age: 62 Year
  Sex: Female
  Weight: 57 kg

DRUGS (8)
  1. KEPPRA [Suspect]
     Indication: CONVULSION
     Dosage: ()
  2. NEURONTIN [Suspect]
     Indication: PARTIAL SEIZURES
     Dosage: (600 MG), (300 MG 9X/DAY), (300 MG 9X/DAY)
     Dates: start: 19960401
  3. NEURONTIN [Suspect]
     Indication: PARTIAL SEIZURES
     Dosage: (600 MG), (300 MG 9X/DAY), (300 MG 9X/DAY)
     Dates: start: 19980101
  4. METHYLPREDNISOLONE ACETATE [Concomitant]
  5. MORPHINE [Concomitant]
  6. FLEXERIL [Concomitant]
  7. ACETYLSALICYLIC ACID [Concomitant]
  8. NITROGLYCERIN [Concomitant]

REACTIONS (1)
  - ANAPHYLACTIC SHOCK [None]
